FAERS Safety Report 7884048-0 (Version None)
Quarter: 2011Q4

REPORT INFORMATION
  Report Type: 
  Country: None (occurrence: None)
  Receive Date: 20111102
  Receipt Date: 20111019
  Transmission Date: 20120403
  Serious: Yes (Hospitalization, Other)
  Sender: FDA-Public Use
  Company Number: US-SANOFI-AVENTIS-2011SA071452

PATIENT
  Age: 49 Year
  Sex: Male

DRUGS (14)
  1. DEXAMETHASONE [Concomitant]
  2. METOCLOPRAMIDE HYDROCHLORIDE [Concomitant]
  3. DIPHENOXYLATE [Concomitant]
  4. DILAUDID [Concomitant]
  5. HYDROCODONE BITARTRATE [Concomitant]
  6. CISPLATIN [Suspect]
     Indication: LIP AND/OR ORAL CAVITY CANCER
     Route: 042
     Dates: start: 20110707, end: 20110707
  7. ONDANSETRON [Concomitant]
  8. DOCETAXEL [Suspect]
     Indication: LIP AND/OR ORAL CAVITY CANCER
     Route: 042
     Dates: start: 20110707, end: 20110707
  9. LOPERAMIDE HCL [Concomitant]
  10. METHYLDOPA [Concomitant]
  11. BACLOFEN [Concomitant]
  12. ERLOTINIB HYDROCHLORIDE [Suspect]
     Indication: LIP AND/OR ORAL CAVITY CANCER
     Route: 065
     Dates: start: 20110716
  13. ERLOTINIB HYDROCHLORIDE [Suspect]
     Route: 065
     Dates: start: 20110628, end: 20110712
  14. PROCHLORPERAZINE MALEATE [Concomitant]

REACTIONS (7)
  - DEHYDRATION [None]
  - HYPONATRAEMIA [None]
  - HYPOTENSION [None]
  - NAUSEA [None]
  - VOMITING [None]
  - DIARRHOEA [None]
  - OFF LABEL USE [None]
